FAERS Safety Report 13794274 (Version 1)
Quarter: 2017Q3

REPORT INFORMATION
  Report Type: Spontaneous
  Country: US (occurrence: US)
  Receive Date: 20170726
  Receipt Date: 20170726
  Transmission Date: 20171127
  Serious: No
  Sender: FDA-Public Use
  Company Number: US-IPSEN BIOPHARMACEUTICALS, INC.-2017-04814

PATIENT
  Sex: Female

DRUGS (15)
  1. UBIDECARENONE [Concomitant]
     Active Substance: UBIDECARENONE
  2. FISH OIL [Concomitant]
     Active Substance: FISH OIL
  3. XERMELO [Suspect]
     Active Substance: TELOTRISTAT ETHYL
     Indication: CARCINOID SYNDROME
     Route: 048
     Dates: start: 2017
  4. XERMELO [Suspect]
     Active Substance: TELOTRISTAT ETHYL
     Indication: CARCINOID TUMOUR
     Dosage: 1-2 TABLETS DAILY
     Route: 048
     Dates: start: 201703, end: 2017
  5. EDARBI [Concomitant]
     Active Substance: AZILSARTAN KAMEDOXOMIL
  6. MECLIZINE [Concomitant]
     Active Substance: MECLIZINE HYDROCHLORIDE
  7. ALBUTEROL. [Concomitant]
     Active Substance: ALBUTEROL
  8. DEXILANT [Concomitant]
     Active Substance: DEXLANSOPRAZOLE
  9. FEXOFENADINE [Concomitant]
     Active Substance: FEXOFENADINE\FEXOFENADINE HYDROCHLORIDE
  10. SOMATULINE [Suspect]
     Active Substance: LANREOTIDE ACETATE
     Indication: PRODUCT USED FOR UNKNOWN INDICATION
     Dosage: NOT REPORTED
     Route: 065
  11. ASPIRIN. [Concomitant]
     Active Substance: ASPIRIN
  12. ROSUVASTATIN CALCIUM. [Concomitant]
     Active Substance: ROSUVASTATIN CALCIUM
  13. VITAMIN D [Concomitant]
     Active Substance: CHOLECALCIFEROL
  14. NASONEX [Concomitant]
     Active Substance: MOMETASONE FUROATE
  15. DILTIAZEM HCL [Concomitant]
     Active Substance: DILTIAZEM HYDROCHLORIDE

REACTIONS (1)
  - Hepatic enzyme increased [Unknown]

NARRATIVE: CASE EVENT DATE: 2017
